FAERS Safety Report 13795358 (Version 2)
Quarter: 2017Q3

REPORT INFORMATION
  Report Type: Spontaneous
  Country: US (occurrence: US)
  Receive Date: 20170726
  Receipt Date: 20170728
  Transmission Date: 20171127
  Serious: Yes (Death)
  Sender: FDA-Public Use
  Company Number: US-PFIZER INC-2017323547

PATIENT
  Age: 63 Year
  Sex: Male
  Weight: 73 kg

DRUGS (5)
  1. MIRALAX [Concomitant]
     Active Substance: POLYETHYLENE GLYCOL 3350
     Indication: CONSTIPATION
     Dosage: 17 G, DAILY
     Route: 048
  2. REGLAN [Concomitant]
     Active Substance: METOCLOPRAMIDE HYDROCHLORIDE
     Indication: NAUSEA
     Dosage: 10 MG, 3X/DAY
     Route: 048
  3. RELISTOR [Concomitant]
     Active Substance: METHYLNALTREXONE BROMIDE
     Indication: CONSTIPATION
     Dosage: 150 MG, ALTERNATE DAY
     Route: 048
  4. TORISEL [Suspect]
     Active Substance: TEMSIROLIMUS
     Indication: OESOPHAGEAL CARCINOMA
     Dosage: 25 MG, WEEKLY
     Route: 042
     Dates: start: 20170208
  5. MORPHINE [Concomitant]
     Active Substance: MORPHINE
     Indication: PAIN
     Dosage: 50 MG, AS NEEDED (EVERY SIX HOURS)
     Route: 048

REACTIONS (2)
  - Neoplasm progression [Fatal]
  - Product use in unapproved indication [Unknown]

NARRATIVE: CASE EVENT DATE: 20170208
